FAERS Safety Report 6864453-1 (Version None)
Quarter: 2010Q3

REPORT INFORMATION
  Report Type: 
  Country: None (occurrence: None)
  Receive Date: 20100721
  Receipt Date: 20080325
  Transmission Date: 20110219
  Serious: No
  Sender: FDA-Public Use
  Company Number: US-PFIZER INC-2008027185

PATIENT
  Sex: Male
  Weight: 90.7 kg

DRUGS (8)
  1. CHANTIX [Suspect]
     Indication: SMOKING CESSATION THERAPY
  2. PAROXETINE HCL [Concomitant]
  3. METOPROLOL [Concomitant]
  4. METFORMIN HYDROCHLORIDE [Concomitant]
  5. LIPITOR [Concomitant]
  6. ACETYLSALICYLIC ACID [Concomitant]
  7. MULTI-VITAMINS [Concomitant]
  8. PREVACID [Concomitant]

REACTIONS (3)
  - CONSTIPATION [None]
  - DRUG INEFFECTIVE [None]
  - FREQUENT BOWEL MOVEMENTS [None]
